FAERS Safety Report 15124222 (Version 1)
Quarter: 2018Q3

REPORT INFORMATION
  Report Type: Spontaneous
  Country: IT (occurrence: IT)
  Receive Date: 20180710
  Receipt Date: 20180710
  Transmission Date: 20181010
  Serious: Yes (Other)
  Sender: FDA-Public Use
  Company Number: IT-TEVA-2018-IT-923885

PATIENT
  Sex: Female

DRUGS (3)
  1. FUROSEMIDE. [Concomitant]
     Active Substance: FUROSEMIDE
  2. NAPROXENE SODICO DOROM [Suspect]
     Active Substance: NAPROXEN SODIUM
     Indication: SPINAL OSTEOARTHRITIS
     Dates: start: 19890101
  3. NEBIVOLOL. [Concomitant]
     Active Substance: NEBIVOLOL

REACTIONS (2)
  - Rash papular [Recovered/Resolved]
  - Erythema multiforme [Recovered/Resolved]

NARRATIVE: CASE EVENT DATE: 20170803
